FAERS Safety Report 8903242 (Version 1)
Quarter: 2012Q4

REPORT INFORMATION
  Report Type: 
  Country: JP (occurrence: JP)
  Receive Date: 20121113
  Receipt Date: 20121113
  Transmission Date: 20130627
  Serious: Yes (Other)
  Sender: FDA-Public Use
  Company Number: JP-PFIZER INC-2012283076

PATIENT
  Age: 59 Year
  Sex: Female

DRUGS (4)
  1. CHAMPIX [Suspect]
     Indication: SMOKING CESSATION THERAPY
     Dosage: 0.5 mg daily
     Route: 048
     Dates: start: 20121107, end: 20121112
  2. PENSELIN [Concomitant]
     Indication: HEADACHE
     Dosage: UNK
     Route: 048
  3. VEGETAMIN [Concomitant]
     Indication: INSOMNIA
     Dosage: UNK
     Route: 048
  4. RINGEREAZE [Concomitant]
     Indication: ANALGESIA
     Dosage: UNK
     Route: 048

REACTIONS (4)
  - Generalised oedema [Recovering/Resolving]
  - Face oedema [Recovering/Resolving]
  - Oedema peripheral [Recovering/Resolving]
  - Wheezing [Recovering/Resolving]
